FAERS Safety Report 21913750 (Version 4)
Quarter: 2024Q3

REPORT INFORMATION
  Report Type: Spontaneous
  Country: BR (occurrence: BR)
  Receive Date: 20230125
  Receipt Date: 20240813
  Transmission Date: 20241017
  Serious: Yes (Other)
  Sender: CELLTRION
  Company Number: BR-CELLTRION INC.-2023BR001447

PATIENT

DRUGS (5)
  1. INFLIXIMAB [Suspect]
     Active Substance: INFLIXIMAB
     Indication: Crohn^s disease
     Dosage: WAS 4 VIALS (AMPOULES) = 400 MG EVERY 2 MONTHS/4 AMPOULES - 400 MG - EVERY 2 MONTHS
     Route: 042
     Dates: start: 20221031
  2. INFLIXIMAB [Suspect]
     Active Substance: INFLIXIMAB
     Dosage: UNK
     Dates: start: 20230117
  3. INFLIXIMAB [Suspect]
     Active Substance: INFLIXIMAB
     Indication: Crohn^s disease
     Dosage: 90 MG APPLICATION PEN, EVERY 2 MONTHS
     Route: 058
  4. INFLIXIMAB [Suspect]
     Active Substance: INFLIXIMAB
     Dosage: 90 MG APPLICATION PEN, EVERY 2 MONTHS
     Route: 058
     Dates: start: 20240802
  5. BENICAR [Concomitant]
     Active Substance: OLMESARTAN MEDOXOMIL
     Indication: Hypertension
     Dosage: 1 PILL PER DAY (START: 3 YEARS AGO)
     Route: 048

REACTIONS (19)
  - Thrombosis [Unknown]
  - Abdominal tenderness [Recovered/Resolved]
  - Insomnia [Recovered/Resolved]
  - Abdominal pain [Recovered/Resolved]
  - Malaise [Recovered/Resolved]
  - Feeling hot [Unknown]
  - Abdominal pain [Unknown]
  - Pain [Unknown]
  - Arthralgia [Unknown]
  - Pyrexia [Unknown]
  - Gastrointestinal disorder [Unknown]
  - Nausea [Recovered/Resolved]
  - Muscle spasms [Recovered/Resolved]
  - Adverse drug reaction [Unknown]
  - Intentional dose omission [Unknown]
  - Therapy interrupted [Recovered/Resolved]
  - Underdose [Unknown]
  - Overdose [Unknown]
  - Intentional product use issue [Unknown]

NARRATIVE: CASE EVENT DATE: 20221220
